FAERS Safety Report 6787551-X (Version None)
Quarter: 2010Q2

REPORT INFORMATION
  Report Type: 
  Country: None (occurrence: None)
  Receive Date: 20100623
  Receipt Date: 20100611
  Transmission Date: 20101027
  Serious: Yes (Hospitalization)
  Sender: FDA-Public Use
  Company Number: US-JNJCH-2010012310

PATIENT
  Age: 5 Year
  Sex: Female
  Weight: 17.7 kg

DRUGS (1)
  1. CHILDREN'S ZYRTEC ALLERGY [Suspect]
     Indication: HYPERSENSITIVITY
     Dosage: TEXT:5 ML ONCE DAILY
     Route: 048
     Dates: start: 20100508, end: 20100510

REACTIONS (3)
  - ABDOMINAL PAIN UPPER [None]
  - PRODUCT QUALITY ISSUE [None]
  - RASH GENERALISED [None]
